FAERS Safety Report 15928865 (Version 1)
Quarter: 2019Q1

REPORT INFORMATION
  Report Type: Spontaneous
  Country: US (occurrence: US)
  Receive Date: 20190206
  Receipt Date: 20190206
  Transmission Date: 20190417
  Serious: Yes (Other)
  Sender: FDA-Public Use
  Company Number: US-PERRIGO-19US001452

PATIENT
  Age: 58 Year
  Sex: Female
  Weight: 68.93 kg

DRUGS (4)
  1. ESTRADIOL. [Concomitant]
     Active Substance: ESTRADIOL
     Indication: HORMONE REPLACEMENT THERAPY
     Dosage: UNK
     Route: 065
  2. ZOLOFT [Concomitant]
     Active Substance: SERTRALINE HYDROCHLORIDE
     Indication: DEPRESSION
     Dosage: UNK
     Route: 048
  3. TUSSIN SEVERE MULTI SYMPTOM COUGH COLD PLUS FLU CF MAX [Suspect]
     Active Substance: ACETAMINOPHEN\DEXTROMETHORPHAN HYDROBROMIDE\GUAIFENESIN\PHENYLEPHRINE HYDROCHLORIDE
     Indication: PRODUCTIVE COUGH
     Dosage: 20 ML, SINGLE
     Route: 048
     Dates: start: 20190127, end: 20190127
  4. TUSSIN SEVERE MULTI SYMPTOM COUGH COLD PLUS FLU CF MAX [Suspect]
     Active Substance: ACETAMINOPHEN\DEXTROMETHORPHAN HYDROBROMIDE\GUAIFENESIN\PHENYLEPHRINE HYDROCHLORIDE
     Indication: SINUS DISORDER

REACTIONS (5)
  - Dyspnoea [Recovered/Resolved]
  - Drug ineffective [Unknown]
  - Rash [Recovered/Resolved]
  - Productive cough [None]
  - Product odour abnormal [None]

NARRATIVE: CASE EVENT DATE: 20190127
